FAERS Safety Report 4362783-9 (Version None)
Quarter: 2004Q2

REPORT INFORMATION
  Report Type: 
  Country: None (occurrence: None)
  Receive Date: 20040517
  Receipt Date: 20040413
  Transmission Date: 20050107
  Serious: No
  Sender: FDA-Public Use
  Company Number: S04-USA-02054-01

PATIENT
  Age: 79 Year
  Sex: Female

DRUGS (10)
  1. NAMENDA [Suspect]
     Indication: DEMENTIA ALZHEIMER'S TYPE
     Dosage: 20 MG QD PO
     Route: 048
     Dates: start: 20040329, end: 20040412
  2. NAMENDA [Suspect]
     Indication: DEMENTIA ALZHEIMER'S TYPE
     Dosage: 5 MG QD PO
     Route: 048
     Dates: start: 20040301, end: 20040307
  3. NAMENDA [Suspect]
     Indication: DEMENTIA ALZHEIMER'S TYPE
     Dosage: 10 MG QD PO
     Route: 048
     Dates: start: 20040308, end: 20040314
  4. NAMENDA [Suspect]
     Indication: DEMENTIA ALZHEIMER'S TYPE
     Dosage: 15 MG QD PO
     Route: 048
     Dates: start: 20040315, end: 20040328
  5. SEROQUEL [Concomitant]
  6. PAXIL [Concomitant]
  7. EXELON [Concomitant]
  8. NIACIN [Concomitant]
  9. CARDIZEM [Concomitant]
  10. PRILOSEC [Concomitant]

REACTIONS (2)
  - CONFUSIONAL STATE [None]
  - HYPERSOMNIA [None]
